FAERS Safety Report 4703312-7 (Version None)
Quarter: 2005Q2

REPORT INFORMATION
  Report Type: 
  Country: None (occurrence: None)
  Receive Date: 20050624
  Receipt Date: 20050415
  Transmission Date: 20051028
  Serious: No
  Sender: FDA-Public Use
  Company Number: 2005BI007969

PATIENT
  Age: 45 Year
  Sex: Female
  Weight: 84.8226 kg

DRUGS (8)
  1. AVONEX [Suspect]
     Indication: MULTIPLE SCLEROSIS
     Dosage: 15 UG;QW; IM; 22.5 UG; QW; IM
     Route: 030
     Dates: start: 20041001, end: 20041001
  2. AVONEX [Suspect]
     Indication: MULTIPLE SCLEROSIS
     Dosage: 15 UG;QW; IM; 22.5 UG; QW; IM
     Route: 030
     Dates: start: 20041001, end: 20041001
  3. AVONEX [Suspect]
     Indication: MULTIPLE SCLEROSIS
     Dosage: 30 UG; QW; IM
     Route: 030
     Dates: start: 20041001, end: 20050101
  4. NATALIZUMAB [Suspect]
     Indication: MULTIPLE SCLEROSIS
     Dosage: 300 MG; QM; IV
     Route: 042
     Dates: start: 20050210, end: 20050210
  5. AVONEX [Suspect]
     Indication: MULTIPLE SCLEROSIS
     Dosage: 7.5 UG; QW; IM; 15 UG; QW; IM; 22.5 UG; QW; IM; 30 UG; QW; IM
     Route: 030
     Dates: start: 20050323, end: 20050323
  6. AVONEX [Suspect]
     Indication: MULTIPLE SCLEROSIS
     Dosage: 7.5 UG; QW; IM; 15 UG; QW; IM; 22.5 UG; QW; IM; 30 UG; QW; IM
     Route: 030
     Dates: start: 20050330, end: 20050330
  7. AVONEX [Suspect]
     Indication: MULTIPLE SCLEROSIS
     Dosage: 7.5 UG; QW; IM; 15 UG; QW; IM; 22.5 UG; QW; IM; 30 UG; QW; IM
     Route: 030
     Dates: start: 20050406, end: 20050406
  8. AVONEX [Suspect]
     Indication: MULTIPLE SCLEROSIS
     Dosage: 7.5 UG; QW; IM; 15 UG; QW; IM; 22.5 UG; QW; IM; 30 UG; QW; IM
     Route: 030
     Dates: start: 20050413

REACTIONS (8)
  - ABNORMAL DREAMS [None]
  - BACK PAIN [None]
  - DIZZINESS [None]
  - FATIGUE [None]
  - INFLUENZA LIKE ILLNESS [None]
  - INSOMNIA [None]
  - MUSCULOSKELETAL DISORDER [None]
  - PAIN IN EXTREMITY [None]
